FAERS Safety Report 9047568 (Version 2)
Quarter: 2013Q2

REPORT INFORMATION
  Report Type: Spontaneous
  Country: US (occurrence: US)
  Receive Date: 20130204
  Receipt Date: 20130404
  Transmission Date: 20140414
  Serious: No
  Sender: FDA-Public Use
  Company Number: US-AMGEN-USASP2013004576

PATIENT
  Age: 64 Year
  Sex: Female
  Weight: 107.48 kg

DRUGS (6)
  1. ENBREL [Suspect]
     Dosage: 50 MG, QWK
     Route: 030
     Dates: start: 20120215
  2. TRAMADOL HCL [Concomitant]
     Indication: PAIN
     Dosage: 50 MG, QID, (ONE OR TWO TABLET).
  3. CELEXA                             /00582602/ [Concomitant]
     Indication: DEPRESSION
     Dosage: 40 MG, QD
  4. LORTAB                             /00607101/ [Concomitant]
     Indication: PAIN
     Dosage: 10-500MG,ONE EACH 4-6 HOURS.
  5. METHOTREXATE SODIUM [Concomitant]
     Dosage: 50MG/2ML,1/2 ML INJECTED PER WEEK.
  6. TUSSIGON [Concomitant]
     Dosage: 5-1.5 MG,ONE Q4-8 HOURS PRN CO

REACTIONS (3)
  - Laryngitis [Not Recovered/Not Resolved]
  - Rash macular [Not Recovered/Not Resolved]
  - Tooth infection [Recovered/Resolved]
